FAERS Safety Report 7767733-0 (Version None)
Quarter: 2011Q3

REPORT INFORMATION
  Report Type: 
  Country: None (occurrence: None)
  Receive Date: 20110922
  Receipt Date: 20110418
  Transmission Date: 20111222
  Serious: Yes (Other)
  Sender: FDA-Public Use
  Company Number: US-ASTRAZENECA-2007UW17790

PATIENT
  Age: 42 Year
  Sex: Male

DRUGS (5)
  1. SEROQUEL [Suspect]
     Indication: SCHIZOPHRENIA
     Route: 048
     Dates: start: 20021001, end: 20050801
  2. GEODON [Concomitant]
  3. RISPERDAL [Concomitant]
  4. STELAZINE [Concomitant]
  5. METHADONE HCL [Concomitant]
     Indication: PAIN

REACTIONS (2)
  - PANCREATITIS [None]
  - HYPERGLYCAEMIA [None]
